FAERS Safety Report 5177854-7 (Version None)
Quarter: 2006Q4

REPORT INFORMATION
  Report Type: 
  Country: None (occurrence: None)
  Receive Date: 20061208
  Receipt Date: 20061127
  Transmission Date: 20070319
  Serious: Yes (Other)
  Sender: FDA-Public Use
  Company Number: 2006147407

PATIENT
  Age: 64 Year
  Sex: Female

DRUGS (1)
  1. SULFASALAZINE [Suspect]
     Dosage: 2 GRAM (500 MG, 4 IN 1 D), ORAL
     Route: 048
     Dates: start: 20031201

REACTIONS (4)
  - PIGMENTATION DISORDER [None]
  - PRURITUS [None]
  - RASH [None]
  - ULTRASOUND LIVER ABNORMAL [None]
